APPROVED DRUG PRODUCT: MILRINONE LACTATE IN DEXTROSE 5%
Active Ingredient: MILRINONE LACTATE
Strength: EQ 20MG BASE/100ML (EQ 0.2MG BASE/ML)
Dosage Form/Route: INJECTABLE;INJECTION
Application: A219170 | Product #001 | TE Code: AP
Applicant: CAPLIN STERILES LTD
Approved: Sep 2, 2025 | RLD: No | RS: No | Type: RX